FAERS Safety Report 9660957 (Version 1)
Quarter: 2013Q4

REPORT INFORMATION
  Report Type: Spontaneous
  Country: US (occurrence: US)
  Receive Date: 20131031
  Receipt Date: 20131031
  Transmission Date: 20140711
  Serious: Yes (Other)
  Sender: FDA-Public Use
  Company Number: US-JHP PHARMACEUTICALS, LLC-JHP201300657

PATIENT
  Age: 18 Year
  Sex: Female

DRUGS (3)
  1. KETALAR [Suspect]
     Indication: DRUG ABUSE
     Route: 050
  2. COCAINE [Suspect]
     Indication: DRUG ABUSE
     Route: 050
  3. ANTIBIOTICS [Concomitant]
     Indication: URINARY TRACT INFECTION

REACTIONS (2)
  - Biliary tract disorder [Unknown]
  - Urinary tract inflammation [Unknown]
